FAERS Safety Report 7309921-3 (Version None)
Quarter: 2011Q1

REPORT INFORMATION
  Report Type: 
  Country: None (occurrence: None)
  Receive Date: 20110224
  Receipt Date: 20110222
  Transmission Date: 20110831
  Serious: No
  Sender: FDA-Public Use
  Company Number: US-TEVA-267630USA

PATIENT
  Sex: Female
  Weight: 68.1 kg

DRUGS (2)
  1. PLAN B ONE-STEP [Suspect]
     Indication: POST COITAL CONTRACEPTION
     Route: 048
     Dates: start: 20110212, end: 20110212
  2. JUNEL FE [Concomitant]
     Indication: CONTRACEPTION
     Route: 048
     Dates: start: 20100201

REACTIONS (3)
  - PELVIC PAIN [None]
  - ABDOMINAL DISTENSION [None]
  - FATIGUE [None]
